FAERS Safety Report 22936585 (Version 2)
Quarter: 2024Q1

REPORT INFORMATION
  Report Type: Spontaneous
  Country: PL (occurrence: PL)
  Receive Date: 20230912
  Receipt Date: 20240328
  Transmission Date: 20240410
  Serious: Yes (Other)
  Sender: FDA-Public Use
  Company Number: PL-AMGEN-POLSP2023158292

PATIENT

DRUGS (3)
  1. PROLIA [Suspect]
     Active Substance: DENOSUMAB
     Indication: Osteoporosis postmenopausal
     Dosage: 60 MILLIGRAM, Q6MO (EVERY 26 WEEKS)
     Route: 058
  2. CALCIUM [Concomitant]
     Active Substance: CALCIUM
     Indication: Mineral supplementation
     Dosage: }=1000 MG, QD
  3. VITAMIN D [Concomitant]
     Active Substance: VITAMIN D NOS
     Indication: Vitamin supplementation
     Dosage: 800 INTERNATIONAL UNIT, QD
     Route: 065

REACTIONS (23)
  - Adverse event [Unknown]
  - COVID-19 [Unknown]
  - Skin disorder [Unknown]
  - Musculoskeletal disorder [Unknown]
  - Gastrointestinal disorder [Unknown]
  - Procedural complication [Unknown]
  - Infection [Unknown]
  - Headache [Unknown]
  - Back pain [Unknown]
  - Spinal fracture [Unknown]
  - Vitamin D deficiency [Unknown]
  - Injection site reaction [Unknown]
  - Administration site reaction [Unknown]
  - Metabolic disorder [Unknown]
  - Nervous system disorder [Unknown]
  - Diarrhoea [Unknown]
  - Contusion [Unknown]
  - Arthralgia [Unknown]
  - Nasopharyngitis [Unknown]
  - Urinary tract infection [Unknown]
  - Hypocalcaemia [Unknown]
  - Drug specific antibody present [Unknown]
  - Fracture [Unknown]
